FAERS Safety Report 8026915-3 (Version None)
Quarter: 2011Q4

REPORT INFORMATION
  Report Type: 
  Country: None (occurrence: None)
  Receive Date: 20111130
  Receipt Date: 20110712
  Transmission Date: 20120403
  Serious: Yes (Hospitalization)
  Sender: FDA-Public Use
  Company Number: US201107003417

PATIENT
  Age: 47 Year
  Sex: Female

DRUGS (3)
  1. OPIOIDS [Concomitant]
  2. BYETTA [Suspect]
     Indication: TYPE 2 DIABETES MELLITUS
     Dosage: , SUBCUTANEOUS
     Route: 058
  3. METFORMIN HCL [Concomitant]

REACTIONS (1)
  - RENAL FAILURE [None]
